FAERS Safety Report 23213430 (Version 1)
Quarter: 2023Q4

REPORT INFORMATION
  Report Type: Other
  Country: US (occurrence: US)
  Receive Date: 20231121
  Receipt Date: 20231121
  Transmission Date: 20240109
  Serious: No
  Sender: FDA-Public Use
  Company Number: US-UROVANT SCIENCES GMBH-202307-URV-001451

PATIENT
  Sex: Female

DRUGS (1)
  1. GEMTESA [Suspect]
     Active Substance: VIBEGRON
     Indication: Product used for unknown indication
     Dosage: 75 MG, QD
     Route: 065

REACTIONS (6)
  - Urinary incontinence [Not Recovered/Not Resolved]
  - Adverse event [Unknown]
  - Drug ineffective [Unknown]
  - Condition aggravated [Unknown]
  - Inability to afford medication [Unknown]
  - Constipation [Unknown]
